FAERS Safety Report 5774988-0 (Version None)
Quarter: 2008Q2

REPORT INFORMATION
  Report Type: 
  Country: None (occurrence: None)
  Receive Date: 20080612
  Receipt Date: 20080602
  Transmission Date: 20081010
  Serious: Yes (Other)
  Sender: FDA-Public Use
  Company Number: 235261J08USA

PATIENT
  Age: 57 Year
  Sex: Female

DRUGS (7)
  1. REBIF [Suspect]
     Indication: MULTIPLE SCLEROSIS
     Dosage: 44 MCG, 3 IN 1 WEEKS, SUBCUTANEOUS
     Route: 058
     Dates: start: 20080101
  2. ASACOL [Concomitant]
  3. WELLBUTRIN [Concomitant]
  4. LEXAPRO [Concomitant]
  5. BACTRIM [Concomitant]
  6. LIPITOR [Concomitant]
  7. FOSAMAX [Concomitant]

REACTIONS (2)
  - CROHN'S DISEASE [None]
  - ONYCHOMADESIS [None]
